FAERS Safety Report 8375010-2 (Version None)
Quarter: 2012Q2

REPORT INFORMATION
  Report Type: 
  Country: None (occurrence: None)
  Receive Date: 20120521
  Receipt Date: 20120509
  Transmission Date: 20120825
  Serious: Yes (Other)
  Sender: FDA-Public Use
  Company Number: US-ROCHE-783529

PATIENT
  Sex: Male
  Weight: 74.91 kg

DRUGS (3)
  1. DIFFERIN [Concomitant]
  2. MINOCYCLINE HCL [Concomitant]
  3. ACCUTANE [Suspect]
     Indication: ACNE
     Dosage: 20-60MG
     Route: 048
     Dates: start: 20030626, end: 20040226

REACTIONS (12)
  - DEPRESSION [None]
  - INFLAMMATORY BOWEL DISEASE [None]
  - LIP DRY [None]
  - CROHN'S DISEASE [None]
  - EPISTAXIS [None]
  - PILONIDAL CYST [None]
  - PERIRECTAL ABSCESS [None]
  - STRESS [None]
  - DYSPEPSIA [None]
  - IRRITABILITY [None]
  - ANAL FISTULA [None]
  - SUICIDAL IDEATION [None]
